FAERS Safety Report 5679933-4 (Version None)
Quarter: 2008Q1

REPORT INFORMATION
  Report Type: 
  Country: None (occurrence: None)
  Receive Date: 20080324
  Receipt Date: 20080324
  Transmission Date: 20080703
  Serious: Yes (Other)
  Sender: FDA-Public Use
  Company Number: 8030733

PATIENT
  Age: 76 Year
  Sex: Male

DRUGS (8)
  1. PREDNISOLONE [Suspect]
     Indication: POLYMYALGIA RHEUMATICA
     Dosage: 15 MG/D PO
     Route: 048
     Dates: start: 20071215, end: 20071217
  2. PREDNISOLONE [Suspect]
     Indication: POLYMYALGIA RHEUMATICA
     Dosage: 5 MG /D PO
     Route: 048
     Dates: start: 20080101, end: 20080101
  3. ASPIRIN [Concomitant]
  4. BENDROFLUMETHIAZIDE [Concomitant]
  5. CODEINE SUL TAB [Concomitant]
  6. ENALAPRIL MALEATE [Concomitant]
  7. LANSOPRAZOLE [Concomitant]
  8. PREDNISOLONE [Suspect]
     Indication: POLYMYALGIA RHEUMATICA
     Dosage: 10 MG /D PO
     Route: 048
     Dates: start: 20080101

REACTIONS (2)
  - ANXIETY [None]
  - EMOTIONAL DISTRESS [None]
